FAERS Safety Report 5518178-5 (Version None)
Quarter: 2007Q4

REPORT INFORMATION
  Report Type: 
  Country: None (occurrence: None)
  Receive Date: 20071113
  Receipt Date: 20071113
  Transmission Date: 20080405
  Serious: Yes (Life-Threatening, Other)
  Sender: FDA-Public Use
  Company Number: None

PATIENT
  Age: 15 Year
  Sex: Female
  Weight: 83.9154 kg

DRUGS (1)
  1. ABILIFY [Suspect]
     Indication: BIPOLAR II DISORDER
     Dosage: 7 MG  1/DAY  PO
     Route: 048
     Dates: start: 20071017, end: 20071112

REACTIONS (11)
  - ACTIVITIES OF DAILY LIVING IMPAIRED [None]
  - AGGRESSION [None]
  - FEELING ABNORMAL [None]
  - FEELING OF BODY TEMPERATURE CHANGE [None]
  - MALAISE [None]
  - NAUSEA [None]
  - PHARMACEUTICAL PRODUCT COMPLAINT [None]
  - SOMNOLENCE [None]
  - SUICIDAL IDEATION [None]
  - VOMITING [None]
  - WEIGHT INCREASED [None]
